FAERS Safety Report 23156651 (Version 1)
Quarter: 2023Q4

REPORT INFORMATION
  Report Type: Spontaneous
  Country: ES (occurrence: ES)
  Receive Date: 20231107
  Receipt Date: 20231107
  Transmission Date: 20240110
  Serious: No
  Sender: FDA-Public Use
  Company Number: ES-SCALL-2023-EME-003554

PATIENT
  Age: 36 Year
  Sex: Male

DRUGS (1)
  1. DUTASTERIDE [Suspect]
     Active Substance: DUTASTERIDE
     Indication: Androgenetic alopecia
     Dosage: 0.5 MG QD
     Route: 048
     Dates: start: 20221201

REACTIONS (1)
  - Testicular pain [Not Recovered/Not Resolved]
